FAERS Safety Report 17163057 (Version 1)
Quarter: 2019Q4

REPORT INFORMATION
  Report Type: Spontaneous
  Country: US (occurrence: US)
  Receive Date: 20191216
  Receipt Date: 20191216
  Transmission Date: 20200122
  Serious: Yes (Hospitalization)
  Sender: FDA-Public Use
  Company Number: None

PATIENT
  Age: 74 Year
  Sex: Female
  Weight: 78 kg

DRUGS (3)
  1. ASPIRIN. [Suspect]
     Active Substance: ASPIRIN
     Indication: DEEP VEIN THROMBOSIS
     Route: 048
     Dates: start: 20151202
  2. APIXABAN [Suspect]
     Active Substance: APIXABAN
     Indication: DEEP VEIN THROMBOSIS
     Route: 048
     Dates: start: 20151202
  3. ATORVASTATIN 40MG DAILY [Concomitant]

REACTIONS (4)
  - Gastrointestinal haemorrhage [None]
  - Transfusion [None]
  - Haemoglobin decreased [None]
  - Deep vein thrombosis [None]

NARRATIVE: CASE EVENT DATE: 20151217
